FAERS Safety Report 6786494-5 (Version None)
Quarter: 2010Q2

REPORT INFORMATION
  Report Type: 
  Country: None (occurrence: None)
  Receive Date: 20100623
  Receipt Date: 20100616
  Transmission Date: 20101027
  Serious: Yes (Other)
  Sender: FDA-Public Use
  Company Number: B0660430A

PATIENT
  Sex: Male

DRUGS (5)
  1. SERETIDE [Suspect]
     Indication: ASTHMA
     Route: 055
     Dates: start: 20100101
  2. FLIXOTIDE [Suspect]
     Indication: ASTHMA
     Route: 055
     Dates: start: 20100515, end: 20100609
  3. VENTOLIN [Suspect]
     Indication: ASTHMA
     Route: 055
     Dates: start: 20100515, end: 20100609
  4. PULMICORT [Concomitant]
     Indication: ASTHMA
     Route: 055
     Dates: end: 20100501
  5. SINGULAIR [Concomitant]
     Indication: ASTHMA
     Route: 048

REACTIONS (6)
  - ASTHMATIC CRISIS [None]
  - DRUG DISPENSING ERROR [None]
  - MEDICATION ERROR [None]
  - OFF LABEL USE [None]
  - PRODUCT LOT NUMBER ISSUE [None]
  - UNDERDOSE [None]
